FAERS Safety Report 7534171-5 (Version None)
Quarter: 2011Q2

REPORT INFORMATION
  Report Type: 
  Country: None (occurrence: None)
  Receive Date: 20110608
  Receipt Date: 20061127
  Transmission Date: 20111010
  Serious: Yes (Death)
  Sender: FDA-Public Use
  Company Number: PHHO2006HU20061

PATIENT

DRUGS (1)
  1. LETROZOLE [Suspect]
     Indication: BREAST CANCER

REACTIONS (1)
  - PNEUMONIA [None]
